FAERS Safety Report 19363180 (Version 1)
Quarter: 2021Q2

REPORT INFORMATION
  Report Type: Spontaneous
  Country: US (occurrence: US)
  Receive Date: 20210603
  Receipt Date: 20210603
  Transmission Date: 20210717
  Serious: No
  Sender: FDA-Public Use
  Company Number: US-KVK-TECH, INC-20210300036

PATIENT
  Sex: Male

DRUGS (1)
  1. CHLORPHEN?12 [Suspect]
     Active Substance: CHLORPHENIRAMINE MALEATE
     Indication: ALLERGIC SINUSITIS
     Dosage: TAKES ONE TABLET (CHLORPHEN?12) IN 12 HOURS, BID
     Route: 048
     Dates: start: 202103

REACTIONS (1)
  - Drug ineffective [Unknown]

NARRATIVE: CASE EVENT DATE: 202103
